FAERS Safety Report 12474225 (Version 2)
Quarter: 2016Q3

REPORT INFORMATION
  Report Type: Spontaneous
  Country: FR (occurrence: FR)
  Receive Date: 20160616
  Receipt Date: 20160915
  Transmission Date: 20161109
  Serious: Yes (Hospitalization, Other)
  Sender: FDA-Public Use
  Company Number: FR-BRISTOL-MYERS SQUIBB COMPANY-BMS-2016-046360

PATIENT
  Age: 61 Year
  Sex: Male
  Weight: 86 kg

DRUGS (2)
  1. ELIQUIS [Suspect]
     Active Substance: APIXABAN
     Indication: PULMONARY EMBOLISM
     Dosage: 10 MG, BID
     Route: 048
     Dates: start: 20160528, end: 20160604
  2. ELIQUIS [Suspect]
     Active Substance: APIXABAN
     Dosage: 5 MG, BID
     Route: 048
     Dates: start: 20160605, end: 20160610

REACTIONS (4)
  - Hospitalisation [Unknown]
  - Oral pain [Unknown]
  - Perineal pain [Unknown]
  - Off label use [Unknown]

NARRATIVE: CASE EVENT DATE: 20160610
